FAERS Safety Report 6385665-X (Version None)
Quarter: 2009Q4

REPORT INFORMATION
  Report Type: 
  Country: None (occurrence: None)
  Receive Date: 20091002
  Receipt Date: 20081014
  Transmission Date: 20100525
  Serious: No
  Sender: FDA-Public Use
  Company Number: US-ASTRAZENECA-2008UW22627

PATIENT
  Age: 56 Year
  Sex: Female

DRUGS (9)
  1. ARIMIDEX [Suspect]
     Route: 048
     Dates: start: 20070601
  2. NEXIUM [Concomitant]
     Route: 048
  3. CELEBREX [Concomitant]
     Route: 048
  4. OSTEO BI-FLEX [Concomitant]
     Dosage: 1500 MG/ 1200 MG TWO TIMES A DAY
     Route: 048
  5. PRISTIQ [Concomitant]
     Dates: start: 20080701
  6. TRAZODONE HCL [Concomitant]
     Route: 048
  7. LORATADINE [Concomitant]
     Route: 048
  8. RELPAX [Concomitant]
     Indication: MIGRAINE
     Route: 048
  9. VITAMIN B-12 [Concomitant]
     Dosage: 1000 MCG WEEKLY
     Route: 030

REACTIONS (6)
  - HOT FLUSH [None]
  - MIGRAINE [None]
  - NAUSEA [None]
  - NIGHT SWEATS [None]
  - OSTEOARTHRITIS [None]
  - VOMITING [None]
